FAERS Safety Report 18754922 (Version 1)
Quarter: 2021Q1

REPORT INFORMATION
  Report Type: Spontaneous
  Country: US (occurrence: US)
  Receive Date: 20210119
  Receipt Date: 20210119
  Transmission Date: 20210419
  Serious: Yes (Other)
  Sender: FDA-Public Use
  Company Number: US-SA-2021SA009240

PATIENT
  Age: 49 Year
  Sex: Male

DRUGS (1)
  1. ZANTAC [Suspect]
     Active Substance: RANITIDINE HYDROCHLORIDE
     Indication: DYSPEPSIA
     Dosage: UNK
     Dates: start: 200601, end: 201601

REACTIONS (5)
  - Scar [Unknown]
  - Procedural pain [Unknown]
  - Sleep disorder [Unknown]
  - Renal cancer [Recovered/Resolved]
  - Deformity [Unknown]

NARRATIVE: CASE EVENT DATE: 20130101
